FAERS Safety Report 12234778 (Version 3)
Quarter: 2016Q2

REPORT INFORMATION
  Report Type: Spontaneous
  Country: JP (occurrence: JP)
  Receive Date: 20160404
  Receipt Date: 20160510
  Transmission Date: 20160815
  Serious: Yes (Death)
  Sender: FDA-Public Use
  Company Number: JP-JNJFOC-20160401141

PATIENT
  Age: 44 Year
  Sex: Female

DRUGS (9)
  1. RISPERDAL CONSTA [Suspect]
     Active Substance: RISPERIDONE
     Indication: PRODUCT USED FOR UNKNOWN INDICATION
     Route: 030
     Dates: start: 20120710, end: 20120920
  2. RISPERDAL CONSTA [Suspect]
     Active Substance: RISPERIDONE
     Indication: PRODUCT USED FOR UNKNOWN INDICATION
     Route: 030
     Dates: start: 20120921, end: 20121004
  3. RISPERDAL CONSTA [Suspect]
     Active Substance: RISPERIDONE
     Indication: PRODUCT USED FOR UNKNOWN INDICATION
     Route: 030
     Dates: start: 20121005
  4. FERROUS SULFATE. [Concomitant]
     Active Substance: FERROUS SULFATE
     Dates: start: 20120710
  5. LONASEN [Concomitant]
     Active Substance: BLONANSERIN
     Route: 048
     Dates: start: 20120710
  6. CHLORPROMAZINE AND PROMETHAZINE [Concomitant]
     Active Substance: CHLORPROMAZINE\PROMETHAZINE
     Route: 048
     Dates: start: 20120710
  7. SODIUM VALPROATE [Concomitant]
     Active Substance: VALPROATE SODIUM
     Route: 048
     Dates: start: 20120710
  8. RISPERDAL [Suspect]
     Active Substance: RISPERIDONE
     Indication: PRODUCT USED FOR UNKNOWN INDICATION
     Route: 048
     Dates: start: 20120710
  9. AKINETON [Concomitant]
     Active Substance: BIPERIDEN HYDROCHLORIDE
     Route: 048
     Dates: start: 20120710

REACTIONS (2)
  - Weight increased [Unknown]
  - Sudden death [Fatal]

NARRATIVE: CASE EVENT DATE: 201507
